FAERS Safety Report 21930813 (Version 3)
Quarter: 2023Q4

REPORT INFORMATION
  Report Type: Spontaneous
  Country: JP (occurrence: JP)
  Receive Date: 20230131
  Receipt Date: 20231031
  Transmission Date: 20240110
  Serious: Yes (Death, Other)
  Sender: FDA-Public Use
  Company Number: JP-KYOWAKIRIN-2019AKK017762

PATIENT
  Age: 41 Year
  Sex: Male

DRUGS (40)
  1. ROMIPLOSTIM [Suspect]
     Active Substance: ROMIPLOSTIM
     Indication: Platelet count decreased
     Dosage: 10 MICROGRAM/KILOGRAM
     Route: 058
     Dates: start: 20191004, end: 20191031
  2. FUROSEMIDE [Concomitant]
     Active Substance: FUROSEMIDE
     Indication: Oedema
     Dosage: 20 MILLIGRAM, PRN
     Route: 041
     Dates: start: 20190930
  3. FLUVOXAMINE [Concomitant]
     Active Substance: FLUVOXAMINE
     Indication: Obsessive-compulsive disorder
     Dosage: 100 MILLIGRAM, BID
     Route: 048
  4. NEXIUM [Concomitant]
     Active Substance: ESOMEPRAZOLE MAGNESIUM
     Indication: Gastritis prophylaxis
     Dosage: 20 MILLIGRAM, QD
     Route: 048
     Dates: start: 20190926
  5. MORPHINE HYDROCHLORIDE [Concomitant]
     Active Substance: MORPHINE HYDROCHLORIDE
     Indication: Palliative care
     Dosage: 10 MILLIGRAM
     Route: 041
     Dates: start: 20191109
  6. XYLOCAINE [Concomitant]
     Active Substance: LIDOCAINE HYDROCHLORIDE
     Indication: Stomatitis
     Dosage: UNK, SEVERAL TIMES PER DAY
     Route: 049
     Dates: start: 20191002
  7. URSODIOL [Concomitant]
     Active Substance: URSODIOL
     Indication: Hepatobiliary disorder prophylaxis
     Dosage: 200 MILLIGRAM, TID
     Route: 048
     Dates: start: 20190926
  8. BIPERIDEN HYDROCHLORIDE [Concomitant]
     Active Substance: BIPERIDEN HYDROCHLORIDE
     Indication: Nervous system disorder prophylaxis
     Dosage: 1 MILLIGRAM, BID
     Route: 048
  9. Posterisan forte [Concomitant]
     Indication: Proctalgia
     Dosage: 1 DOSAGE FORM, BID
     Route: 061
     Dates: start: 20191009
  10. BIO-THREE [Concomitant]
     Active Substance: HERBALS
     Indication: Irritable bowel syndrome
     Dosage: 1 GRAM, TID
     Route: 048
  11. SODIUM GUALENATE MONOHYDRATE [Concomitant]
     Active Substance: SODIUM GUALENATE MONOHYDRATE
     Indication: Stomatitis
     Dosage: UNK, SEVERAL TIMES PER DAY
     Route: 049
     Dates: start: 20191002
  12. MAXACALCITOL [Concomitant]
     Active Substance: MAXACALCITOL
     Indication: Psoriasis
     Dosage: OPTIMAL DOSE
     Route: 061
  13. BETAMETHASONE DIPROPIONATE [Concomitant]
     Active Substance: BETAMETHASONE DIPROPIONATE
     Indication: Psoriasis
     Dosage: OPTIMAL DOSE
     Route: 061
  14. MYCOPHENOLATE MOFETIL [Concomitant]
     Active Substance: MYCOPHENOLATE MOFETIL
     Indication: Prophylaxis against graft versus host disease
     Dosage: 1000 MILLIGRAM, BID
     Route: 048
     Dates: start: 20191002
  15. PREVYMIS [Concomitant]
     Active Substance: LETERMOVIR
     Indication: Antiviral prophylaxis
     Dosage: 240 MILLIGRAM
     Route: 048
     Dates: start: 20191105
  16. ACYCLOVIR [Concomitant]
     Active Substance: ACYCLOVIR
     Indication: Antiviral prophylaxis
     Dosage: 200 MILLIGRAM
     Route: 048
     Dates: start: 20191105
  17. CUBICIN [Concomitant]
     Active Substance: DAPTOMYCIN
     Indication: Febrile neutropenia
     Dosage: 425 MILLIGRAM, QD
     Route: 041
     Dates: start: 20191010, end: 20191107
  18. MICAFUNGIN SODIUM [Concomitant]
     Active Substance: MICAFUNGIN SODIUM
     Indication: Febrile neutropenia
     Dosage: 150 TO 300 MG, QD
     Route: 041
     Dates: start: 20191024
  19. AMINO ACIDS\DEXTROSE\ELECTROLYTES NOS\MINERALS\VITAMINS [Concomitant]
     Active Substance: AMINO ACIDS\DEXTROSE\ELECTROLYTES NOS\MINERALS\VITAMINS
     Indication: Nausea
     Dosage: 1500 MILLILITER
     Route: 041
     Dates: start: 20191031
  20. KCL [Concomitant]
     Active Substance: POTASSIUM CHLORIDE
     Indication: Hypokalaemia
     Dosage: 40 TO 80 MILLIEQUIVALENT
     Route: 042
     Dates: start: 20191003
  21. HUMULIN R [Concomitant]
     Active Substance: INSULIN HUMAN
     Indication: Hyperglycaemia
     Dosage: 17 TO 26 INTERNATIONAL UNIT
     Route: 041
     Dates: start: 20191025
  22. CALCIUM GLUCONATE [Concomitant]
     Active Substance: CALCIUM GLUCONATE
     Indication: Hypocalcaemia
     Dosage: 10 MILLILITER
     Route: 041
     Dates: start: 20191018
  23. MOMETASONE FUROATE [Concomitant]
     Active Substance: MOMETASONE FUROATE
     Indication: Rash
     Dosage: UNK, ONE TO SEVERAL TIMES PER DAY
     Route: 061
     Dates: start: 20191018
  24. DIPHENHYDRAMINE [Concomitant]
     Active Substance: DIPHENHYDRAMINE
     Indication: Rash
     Dosage: UNK, ONE TO SEVERAL TIMES PER DAY
     Route: 061
     Dates: start: 20191018
  25. LANOCONAZOLE [Concomitant]
     Active Substance: LANOCONAZOLE
     Indication: Skin candida
     Dosage: UNK UNK, QD
     Route: 061
     Dates: start: 20191021
  26. Azunol [Concomitant]
     Indication: Skin candida
     Dosage: UNK UNK, TID
     Route: 061
     Dates: start: 20191028
  27. SILVER SULFADIAZINE [Concomitant]
     Active Substance: SILVER SULFADIAZINE
     Indication: Decubitus ulcer
     Dosage: UNK, AT TREATMENT
     Route: 061
     Dates: start: 20191105
  28. AZILSARTAN KAMEDOXOMIL [Concomitant]
     Active Substance: AZILSARTAN KAMEDOXOMIL
     Indication: Hypertension
     Dosage: 20 MILLIGRAM
     Route: 048
     Dates: start: 20191027
  29. AMLODIPINE [Concomitant]
     Active Substance: AMLODIPINE BESYLATE
     Indication: Hypertension
     Dosage: 10 MILLIGRAM (5 TO 10 MG)
     Route: 048
     Dates: start: 20191028
  30. POLARAMINE [Concomitant]
     Active Substance: DEXCHLORPHENIRAMINE MALEATE
     Indication: Rash
     Dosage: 5 MILLIGRAM, PRN
     Route: 041
     Dates: start: 20191018
  31. HYDROXYZINE HYDROCHLORIDE [Concomitant]
     Active Substance: HYDROXYZINE HYDROCHLORIDE
     Indication: Rash
     Dosage: 50 MILLIGRAM, PRN
     Route: 041
     Dates: start: 20190929
  32. CHLORPROMAZINE [Concomitant]
     Active Substance: CHLORPROMAZINE
     Indication: Nausea
     Dosage: 10 MILLIGRAM, PRN
     Route: 030
     Dates: start: 20191005
  33. CHLORPROMAZINE [Concomitant]
     Active Substance: CHLORPROMAZINE
     Indication: Rash
     Dosage: UNK
     Route: 065
  34. ACETAMINOPHEN [Concomitant]
     Active Substance: ACETAMINOPHEN
     Indication: Febrile neutropenia
     Dosage: 600 MILLIGRAM, PRN
     Route: 042
     Dates: start: 20191008
  35. HALOPERIDOL [Concomitant]
     Active Substance: HALOPERIDOL
     Indication: Obsessive-compulsive disorder
     Dosage: 0.75 MILLIGRAM, BID
     Route: 048
  36. HALOPERIDOL [Concomitant]
     Active Substance: HALOPERIDOL
     Indication: Restlessness
     Dosage: 5 MILLIGRAM, PRN
     Route: 041
     Dates: start: 20191023
  37. HALOPERIDOL [Concomitant]
     Active Substance: HALOPERIDOL
     Indication: Obsessive-compulsive disorder
  38. MIDAZOLAM [Concomitant]
     Active Substance: MIDAZOLAM
     Indication: Restlessness
     Dosage: UNK, CONTINUOUS INFUSION ONLY DURING THE NIGHT
     Route: 030
     Dates: start: 20191025
  39. CYCLOSPORINE [Concomitant]
     Active Substance: CYCLOSPORINE
     Indication: Prophylaxis against graft versus host disease
     Dosage: 280 MILLIGRAM (230 TO 280 MG)
     Route: 041
     Dates: start: 20191002
  40. MEROPENEM [Concomitant]
     Active Substance: MEROPENEM
     Indication: Febrile neutropenia
     Dosage: 1 GRAM, TID
     Route: 041
     Dates: start: 20191010

REACTIONS (1)
  - Pneumonia [Fatal]

NARRATIVE: CASE EVENT DATE: 20191107
